FAERS Safety Report 9025069 (Version 2)
Quarter: 2013Q1

REPORT INFORMATION
  Report Type: Spontaneous
  Country: US (occurrence: US)
  Receive Date: 20130121
  Receipt Date: 20130204
  Transmission Date: 20140127
  Serious: Yes (Life-Threatening, Hospitalization)
  Sender: FDA-Public Use
  Company Number: US-JNJFOC-20130106270

PATIENT
  Age: 60 None
  Sex: Male
  Weight: 110 kg

DRUGS (7)
  1. XARELTO [Suspect]
     Indication: KNEE ARTHROPLASTY
     Route: 048
     Dates: start: 20121114, end: 20121115
  2. XARELTO [Suspect]
     Indication: THROMBOSIS PROPHYLAXIS
     Route: 048
     Dates: start: 20121114, end: 20121115
  3. VITAMIN C [Concomitant]
     Route: 065
     Dates: start: 20121107
  4. ASA [Concomitant]
     Route: 065
     Dates: start: 20121107
  5. FENOFIBRATE [Concomitant]
     Route: 065
     Dates: start: 20121107
  6. GLIPIZIDE [Concomitant]
     Route: 065
     Dates: start: 20121107
  7. IBUPROFEN [Concomitant]
     Route: 065
     Dates: start: 20121107

REACTIONS (1)
  - Pulmonary embolism [Recovered/Resolved]
